FAERS Safety Report 25645965 (Version 2)
Quarter: 2025Q3

REPORT INFORMATION
  Report Type: Spontaneous
  Country: EU (occurrence: EU)
  Receive Date: 20250805
  Receipt Date: 20250827
  Transmission Date: 20251020
  Serious: Yes (Death, Other)
  Sender: ALEXION PHARMACEUTICALS
  Company Number: EU-AstraZeneca-CH-00922100A

PATIENT
  Age: 65 Year
  Sex: Male

DRUGS (5)
  1. SOLIRIS [Suspect]
     Active Substance: ECULIZUMAB
     Indication: Erythema
  2. SOLIRIS [Suspect]
     Active Substance: ECULIZUMAB
     Indication: Skin ulcer
  3. SOLIRIS [Suspect]
     Active Substance: ECULIZUMAB
     Indication: Skin atrophy
  4. CEFTAZIDIME [Concomitant]
     Active Substance: CEFTAZIDIME
     Route: 065
  5. CEFTRIAXONE [Concomitant]
     Active Substance: CEFTRIAXONE
     Route: 065

REACTIONS (6)
  - Pharyngeal abscess [Fatal]
  - Otitis media [Fatal]
  - Bone erosion [Fatal]
  - Vocal cord paresis [Fatal]
  - Pseudomonas infection [Fatal]
  - Klebsiella infection [Fatal]

NARRATIVE: CASE EVENT DATE: 20250225
